FAERS Safety Report 21222004 (Version 1)
Quarter: 2022Q3

REPORT INFORMATION
  Report Type: Spontaneous
  Country: US (occurrence: None)
  Receive Date: 20220816
  Receipt Date: 20220816
  Transmission Date: 20221026
  Serious: Yes (Other)
  Sender: FDA-Public Use
  Company Number: None

PATIENT
  Sex: Male

DRUGS (1)
  1. STELARA [Suspect]
     Active Substance: USTEKINUMAB
     Indication: Crohn^s disease
     Dosage: INJECT 1 PREFILLED SYRINGE UNDER THE SKIN (SUBCUTANEOUS INJECTION) ONCE EVERY 8 WEEKS?
     Route: 058
     Dates: start: 20210312

REACTIONS (2)
  - Cerebrovascular accident [None]
  - Quality of life decreased [None]
